FAERS Safety Report 26095953 (Version 1)
Quarter: 2025Q4

REPORT INFORMATION
  Report Type: Spontaneous
  Country: CA (occurrence: CA)
  Receive Date: 20251127
  Receipt Date: 20251127
  Transmission Date: 20260118
  Serious: Yes (Other)
  Sender: DECIPHERA PHARMACEUTICALS
  Company Number: CA-DECIPHERA PHARMACEUTICALS LLC-2025CA001467

PATIENT
  Sex: Female

DRUGS (2)
  1. QINLOCK [Suspect]
     Active Substance: RIPRETINIB
     Indication: Product used for unknown indication
     Dosage: 150 MILLIGRAM, QD
  2. QINLOCK [Suspect]
     Active Substance: RIPRETINIB
     Dosage: 150 MILLIGRAM, BID

REACTIONS (4)
  - Malignant neoplasm progression [Unknown]
  - Fatigue [Unknown]
  - Incorrect dosage administered [Unknown]
  - Inappropriate schedule of product administration [Unknown]
